FAERS Safety Report 21439739 (Version 1)
Quarter: 2022Q4

REPORT INFORMATION
  Report Type: Spontaneous
  Country: US (occurrence: US)
  Receive Date: 20221011
  Receipt Date: 20221011
  Transmission Date: 20230113
  Serious: No
  Sender: FDA-Public Use
  Company Number: US-BAYER-2022A139507

PATIENT

DRUGS (2)
  1. ASTEPRO [Suspect]
     Active Substance: AZELASTINE HYDROCHLORIDE
     Indication: Chronic sinusitis
     Dosage: UNK
     Route: 045
  2. ASPIRIN [Concomitant]
     Active Substance: ASPIRIN
     Dosage: 70 YEARS

REACTIONS (1)
  - Drug ineffective for unapproved indication [None]
